FAERS Safety Report 13660094 (Version 8)
Quarter: 2018Q1

REPORT INFORMATION
  Report Type: Spontaneous
  Country: CA (occurrence: CA)
  Receive Date: 20170616
  Receipt Date: 20180122
  Transmission Date: 20180508
  Serious: Yes (Hospitalization, Other)
  Sender: FDA-Public Use
  Company Number: CA-CELLTRION INC.-2017CA007824

PATIENT

DRUGS (5)
  1. SALOFALK                           /00000301/ [Concomitant]
     Active Substance: MESALAMINE
     Dosage: UNK
     Route: 054
     Dates: start: 2009
  2. INFLECTRA [Suspect]
     Active Substance: INFLIXIMAB-DYYB
     Indication: COLITIS ULCERATIVE
     Dosage: 325 MG, CYCLIC (Q 2, 6 WEEKS, THEN EVERY 8 WEEKS)
     Route: 042
     Dates: start: 20170602
  3. PREDNISONE. [Concomitant]
     Active Substance: PREDNISONE
     Dosage: 40 UNK, UNK
     Route: 048
     Dates: start: 201705, end: 201705
  4. MEZAVANT [Concomitant]
     Active Substance: MESALAMINE
     Dosage: 1.2 G, UNK
     Route: 065
     Dates: start: 2009
  5. PREDNISONE. [Concomitant]
     Active Substance: PREDNISONE
     Dosage: 50 MG, DAILY
     Route: 042
     Dates: start: 201705

REACTIONS (9)
  - Incorrect dose administered [Unknown]
  - Drug effect incomplete [Unknown]
  - Haematochezia [Not Recovered/Not Resolved]
  - Pyrexia [Unknown]
  - Diarrhoea [Unknown]
  - Drug effect incomplete [Unknown]
  - Faeces hard [Not Recovered/Not Resolved]
  - Varicella [Recovering/Resolving]
  - Bowel movement irregularity [Not Recovered/Not Resolved]

NARRATIVE: CASE EVENT DATE: 201706
